FAERS Safety Report 5521116-2 (Version None)
Quarter: 2007Q4

REPORT INFORMATION
  Report Type: 
  Country: None (occurrence: None)
  Receive Date: 20071119
  Receipt Date: 20071114
  Transmission Date: 20080405
  Serious: Yes (Life-Threatening, Hospitalization)
  Sender: FDA-Public Use
  Company Number: JP-ASTRAZENECA-2007AP06781

PATIENT
  Age: 29594 Day
  Sex: Male
  Weight: 47 kg

DRUGS (8)
  1. TENORMIN [Suspect]
     Indication: HYPERTENSION
     Route: 048
     Dates: start: 20060101, end: 20070926
  2. ALPINY [Suspect]
     Indication: PYREXIA
     Route: 054
     Dates: start: 20070924, end: 20070924
  3. WARFARIN SODIUM [Concomitant]
     Indication: CEREBRAL INFARCTION
     Route: 048
     Dates: start: 20000101, end: 20070927
  4. PLETAL [Concomitant]
     Indication: CEREBRAL INFARCTION
     Route: 048
     Dates: start: 20000101, end: 20070927
  5. RYTHMODAN [Concomitant]
     Indication: ARRHYTHMIA
     Route: 048
     Dates: start: 20060101, end: 20070927
  6. NORVASC [Concomitant]
     Indication: HYPERTENSION
     Route: 048
     Dates: start: 20060101, end: 20070926
  7. UNASYN [Concomitant]
     Indication: PNEUMONIA
     Route: 041
     Dates: start: 20070901, end: 20070907
  8. UNASYN [Concomitant]
     Route: 041
     Dates: start: 20070921, end: 20070926

REACTIONS (5)
  - DISSEMINATED INTRAVASCULAR COAGULATION [None]
  - HEPATIC FUNCTION ABNORMAL [None]
  - PNEUMONIA [None]
  - PYREXIA [None]
  - RHABDOMYOLYSIS [None]
